FAERS Safety Report 7909511-5 (Version None)
Quarter: 2011Q4

REPORT INFORMATION
  Report Type: 
  Country: None (occurrence: None)
  Receive Date: 20111111
  Receipt Date: 20111104
  Transmission Date: 20120403
  Serious: Yes (Hospitalization)
  Sender: FDA-Public Use
  Company Number: US-US-EMD SERONO, INC.-430014M05USA

PATIENT
  Sex: Female

DRUGS (2)
  1. NOVANTRONE [Suspect]
     Route: 042
     Dates: start: 20020301, end: 20031114
  2. NOVANTRONE [Suspect]
     Indication: MULTIPLE SCLEROSIS
     Route: 042
     Dates: start: 20020107, end: 20020301

REACTIONS (1)
  - MYELOID LEUKAEMIA [None]
